FAERS Safety Report 8038807-4 (Version None)
Quarter: 2012Q1

REPORT INFORMATION
  Report Type: 
  Country: None (occurrence: None)
  Receive Date: 20120111
  Receipt Date: 20111206
  Transmission Date: 20120608
  Serious: No
  Sender: FDA-Public Use
  Company Number: US-AMGEN-USASP2011064908

PATIENT
  Age: 28 Year
  Sex: Female

DRUGS (2)
  1. ENBREL [Suspect]
     Indication: RHEUMATOID ARTHRITIS
     Dosage: 50 MG, QWK
     Dates: start: 20110321
  2. METHOTREXATE [Concomitant]
     Dosage: 1 MG, UNK
     Dates: start: 20110301

REACTIONS (10)
  - RHEUMATOID ARTHRITIS [None]
  - INJECTION SITE ERYTHEMA [None]
  - INJECTION SITE PAIN [None]
  - SKIN DISCOLOURATION [None]
  - PURULENCE [None]
  - PAIN IN EXTREMITY [None]
  - SKIN MASS [None]
  - INJECTION SITE INDURATION [None]
  - HYPERAESTHESIA [None]
  - EAR INFECTION [None]
